FAERS Safety Report 5524667-X (Version None)
Quarter: 2007Q4

REPORT INFORMATION
  Report Type: 
  Country: None (occurrence: None)
  Receive Date: 20071123
  Receipt Date: 20071114
  Transmission Date: 20080405
  Serious: Yes (Hospitalization, Other)
  Sender: FDA-Public Use
  Company Number: US-SHR-US-2007-043375

PATIENT
  Age: 47 Year
  Sex: Female

DRUGS (3)
  1. BETASERON [Suspect]
     Indication: RELAPSING-REMITTING MULTIPLE SCLEROSIS
     Dosage: 8 MIU, EVERY 2D
     Route: 058
     Dates: start: 20060620, end: 20060824
  2. BETASERON [Suspect]
     Dosage: 8 MIU, EVERY 2D
     Route: 058
     Dates: start: 20060914, end: 20061123
  3. BETASERON [Suspect]
     Dosage: 8 MIU, EVERY 2D
     Route: 058
     Dates: start: 20070221, end: 20070812

REACTIONS (2)
  - CEREBROVASCULAR ACCIDENT [None]
  - MULTIPLE SCLEROSIS [None]
